FAERS Safety Report 24354660 (Version 1)
Quarter: 2024Q3

REPORT INFORMATION
  Report Type: Spontaneous
  Country: AU (occurrence: AU)
  Receive Date: 20240923
  Receipt Date: 20240923
  Transmission Date: 20241016
  Serious: Yes (Life-Threatening)
  Sender: MERCK
  Company Number: AU-009507513-2409AUS006066

PATIENT
  Age: 78 Year
  Sex: Male

DRUGS (1)
  1. SUGAMMADEX SODIUM [Suspect]
     Active Substance: SUGAMMADEX SODIUM
     Dosage: DOSE: 200 MILLIGRAM; INTERVAL: 1 TOTAL (ALSO REPORTED AS STAT DOSE)
     Route: 042
     Dates: start: 20240707

REACTIONS (3)
  - Hypotension [Recovered/Resolved]
  - Pharyngeal swelling [Recovered/Resolved]
  - Swelling face [Recovered/Resolved]

NARRATIVE: CASE EVENT DATE: 20240707
